FAERS Safety Report 7911951-5 (Version None)
Quarter: 2011Q4

REPORT INFORMATION
  Report Type: 
  Country: None (occurrence: None)
  Receive Date: 20111114
  Receipt Date: 20111104
  Transmission Date: 20120403
  Serious: Yes (Death, Hospitalization)
  Sender: FDA-Public Use
  Company Number: JP-JNJFOC-20111007419

PATIENT
  Age: 23 Year
  Sex: Female

DRUGS (37)
  1. TOPIRAMATE [Suspect]
     Route: 048
     Dates: start: 20090711, end: 20090717
  2. TOPIRAMATE [Suspect]
     Route: 048
     Dates: start: 20090627, end: 20090703
  3. TEGRETOL [Suspect]
     Route: 048
     Dates: start: 20090814, end: 20091005
  4. TEGRETOL [Suspect]
     Route: 048
     Dates: start: 20090627, end: 20090813
  5. PHENYTOIN SODIUM CAP [Suspect]
     Indication: EPILEPSY
     Route: 048
     Dates: start: 20010101, end: 20091015
  6. ZONISAMIDE [Concomitant]
     Route: 048
     Dates: start: 20090605, end: 20090625
  7. BIFIDOBACTERIUM [Concomitant]
     Route: 048
     Dates: start: 20090310, end: 20100402
  8. TOPIRAMATE [Suspect]
     Indication: EPILEPSY
     Route: 048
     Dates: start: 20090601, end: 20090607
  9. TOPIRAMATE [Suspect]
     Indication: ENCEPHALITIS
     Route: 048
     Dates: start: 20090610, end: 20090611
  10. MIDAZOLAM [Suspect]
     Indication: PRODUCT USED FOR UNKNOWN INDICATION
     Route: 048
     Dates: start: 20090524, end: 20090525
  11. MAGNESIUM OXIDE [Concomitant]
     Route: 048
     Dates: start: 20090310, end: 20100402
  12. TOPIRAMATE [Suspect]
     Route: 048
     Dates: start: 20090612, end: 20090614
  13. TEGRETOL [Suspect]
     Route: 048
     Dates: start: 20091006, end: 20100402
  14. TOPIRAMATE [Suspect]
     Route: 048
     Dates: start: 20090610, end: 20090611
  15. TOPIRAMATE [Suspect]
     Route: 048
     Dates: start: 20090711, end: 20090717
  16. TEGRETOL [Suspect]
     Indication: EPILEPSY
     Route: 048
     Dates: start: 20010101, end: 20090625
  17. FAMOTIDINE [Concomitant]
     Route: 048
     Dates: start: 20090310, end: 20100402
  18. TOPIRAMATE [Suspect]
     Route: 048
     Dates: start: 20090627, end: 20090703
  19. TOPIRAMATE [Suspect]
     Route: 048
     Dates: start: 20090718, end: 20091012
  20. PHENYTOIN SODIUM CAP [Suspect]
     Route: 048
     Dates: start: 20091016, end: 20100402
  21. MIDAZOLAM [Suspect]
     Route: 048
     Dates: start: 20090813, end: 20090814
  22. TOPIRAMATE [Suspect]
     Route: 048
     Dates: start: 20090525, end: 20090531
  23. TOPIRAMATE [Suspect]
     Route: 048
     Dates: start: 20090718, end: 20091012
  24. TOPIRAMATE [Suspect]
     Route: 048
     Dates: start: 20090601, end: 20090607
  25. PRAVASTATIN SODIUM [Concomitant]
     Route: 048
     Dates: start: 20100210, end: 20100402
  26. MIDAZOLAM [Suspect]
     Route: 048
     Dates: start: 20091001, end: 20091002
  27. PHENOBARBITAL TAB [Concomitant]
     Route: 048
     Dates: start: 20091005, end: 20100402
  28. TOPIRAMATE [Suspect]
     Route: 048
     Dates: start: 20090704, end: 20090710
  29. TOPIRAMATE [Suspect]
     Route: 048
     Dates: start: 20090608, end: 20090609
  30. TOPIRAMATE [Suspect]
     Route: 048
     Dates: start: 20090612, end: 20090614
  31. TOPIRAMATE [Suspect]
     Route: 048
     Dates: start: 20090704, end: 20090710
  32. TOPIRAMATE [Suspect]
     Route: 048
     Dates: start: 20090525, end: 20090531
  33. TOPIRAMATE [Suspect]
     Route: 048
     Dates: start: 20090608, end: 20090609
  34. MIDAZOLAM [Suspect]
     Route: 048
     Dates: start: 20090626, end: 20090627
  35. MYSTAN [Concomitant]
     Route: 048
     Dates: start: 20100304, end: 20100402
  36. MYSTAN [Concomitant]
     Route: 048
     Dates: end: 20090524
  37. PHENOBARBITAL TAB [Concomitant]
     Route: 048
     Dates: end: 20090524

REACTIONS (4)
  - NEAR DROWNING [None]
  - LIVER DISORDER [None]
  - EPILEPSY [None]
  - HYPERAMMONAEMIA [None]
